FAERS Safety Report 9508533 (Version 2)
Quarter: 2013Q3

REPORT INFORMATION
  Report Type: Spontaneous
  Country: AU (occurrence: AU)
  Receive Date: 20130909
  Receipt Date: 20130909
  Transmission Date: 20140515
  Serious: Yes (Other)
  Sender: FDA-Public Use
  Company Number: AU-PFIZER INC-2013239275

PATIENT
  Age: 63 Year
  Sex: Male

DRUGS (3)
  1. EFEXOR XR [Suspect]
     Indication: DEPRESSION
     Dosage: 150 MG, UNK
     Route: 048
     Dates: start: 2002
  2. EFEXOR XR [Suspect]
     Dosage: 300 MG, UNK
     Route: 048
  3. EFEXOR XR [Suspect]
     Dosage: 375 MG, 1X/MORNING
     Route: 048

REACTIONS (9)
  - Neurodegenerative disorder [Unknown]
  - Amnesia [Unknown]
  - Drug ineffective [Unknown]
  - Emotional distress [Unknown]
  - Disorientation [Unknown]
  - Activities of daily living impaired [Unknown]
  - Hearing impaired [Unknown]
  - Dry mouth [Unknown]
  - Fatigue [Unknown]
